FAERS Safety Report 14938086 (Version 3)
Quarter: 2020Q4

REPORT INFORMATION
  Report Type: Spontaneous
  Country: US (occurrence: US)
  Receive Date: 20180525
  Receipt Date: 20201106
  Transmission Date: 20210113
  Serious: Yes (Other)
  Sender: FDA-Public Use
  Company Number: US-ASTRAZENECA-2018SE67256

PATIENT
  Age: 58 Year
  Sex: Male
  Weight: 79.4 kg

DRUGS (40)
  1. METOPROLOL. [Concomitant]
     Active Substance: METOPROLOL
     Indication: HYPERTENSION
  2. PNEUMOVAX 23 [Concomitant]
     Active Substance: PNEUMOCOCCAL VACCINE, POLYVALENT 23
  3. ACTOS [Concomitant]
     Active Substance: PIOGLITAZONE HYDROCHLORIDE
  4. AVANDIA [Concomitant]
     Active Substance: ROSIGLITAZONE MALEATE
  5. PRILOSEC [Suspect]
     Active Substance: OMEPRAZOLE MAGNESIUM
     Indication: GASTROOESOPHAGEAL REFLUX DISEASE
     Dosage: GENERIC20.0MG UNKNOWN
     Route: 065
     Dates: start: 2008, end: 2014
  6. LISINOPRIL. [Concomitant]
     Active Substance: LISINOPRIL
     Indication: HYPERTENSION
  7. SERTRALINE [Concomitant]
     Active Substance: SERTRALINE HYDROCHLORIDE
     Indication: DEPRESSION
  8. ZOLOFT [Concomitant]
     Active Substance: SERTRALINE HYDROCHLORIDE
  9. JANUVIA [Concomitant]
     Active Substance: SITAGLIPTIN PHOSPHATE
  10. GLUCOVANCE [Concomitant]
     Active Substance: GLYBURIDE\METFORMIN HYDROCHLORIDE
  11. PRILOSEC [Suspect]
     Active Substance: OMEPRAZOLE MAGNESIUM
     Indication: GASTROOESOPHAGEAL REFLUX DISEASE
     Dosage: GENERIC20.0MG UNKNOWN
     Route: 065
     Dates: start: 2016
  12. PROTONIX [Suspect]
     Active Substance: PANTOPRAZOLE SODIUM
     Indication: GASTROOESOPHAGEAL REFLUX DISEASE
     Dosage: 40.0MG UNKNOWN
     Route: 065
     Dates: start: 2006
  13. HUMULIN NOS [Concomitant]
     Active Substance: INSULIN HUMAN
     Indication: DIABETES MELLITUS
  14. FAMOTIDINE. [Concomitant]
     Active Substance: FAMOTIDINE
  15. RANITIDINE. [Concomitant]
     Active Substance: RANITIDINE
  16. ENALAPRIL [Concomitant]
     Active Substance: ENALAPRIL
  17. DESIPRAMINE [Concomitant]
     Active Substance: DESIPRAMINE
  18. ROBITUSSIN (GUAIFENESIN) [Concomitant]
     Active Substance: GUAIFENESIN
  19. IBUPROFEN. [Concomitant]
     Active Substance: IBUPROFEN
  20. LOVASTATIN. [Concomitant]
     Active Substance: LOVASTATIN
  21. INSULIN [Concomitant]
     Active Substance: INSULIN NOS
  22. PROTONIX [Suspect]
     Active Substance: PANTOPRAZOLE SODIUM
     Indication: GASTROOESOPHAGEAL REFLUX DISEASE
     Dosage: 40.0MG UNKNOWN
     Route: 065
     Dates: start: 2006
  23. ECONAZOLE. [Concomitant]
     Active Substance: ECONAZOLE NITRATE
  24. METFORMIN [Concomitant]
     Active Substance: METFORMIN HYDROCHLORIDE
  25. LANTUS [Concomitant]
     Active Substance: INSULIN GLARGINE
  26. PRILOSEC [Suspect]
     Active Substance: OMEPRAZOLE MAGNESIUM
     Indication: GASTROOESOPHAGEAL REFLUX DISEASE
     Dosage: 20.0MG UNKNOWN
     Route: 048
     Dates: start: 1996, end: 2000
  27. PRILOSEC [Suspect]
     Active Substance: OMEPRAZOLE MAGNESIUM
     Indication: GASTROOESOPHAGEAL REFLUX DISEASE
     Dosage: 20.0MG UNKNOWN
     Route: 048
     Dates: start: 2009
  28. PROTONIX [Suspect]
     Active Substance: PANTOPRAZOLE SODIUM
     Indication: GASTROOESOPHAGEAL REFLUX DISEASE
     Dosage: GENERIC40.0MG UNKNOWN
     Route: 065
     Dates: start: 2008
  29. ATORVASTATIN [Concomitant]
     Active Substance: ATORVASTATIN
  30. ATENOLOL. [Concomitant]
     Active Substance: ATENOLOL
  31. PRILOSEC [Suspect]
     Active Substance: OMEPRAZOLE MAGNESIUM
     Indication: GASTROOESOPHAGEAL REFLUX DISEASE
     Dosage: GENERIC- DELAYED RELEASE20.0MG UNKNOWN
     Route: 048
     Dates: start: 20150902
  32. LOSARTAN. [Concomitant]
     Active Substance: LOSARTAN
     Indication: HYPERTENSION
  33. ASPIRIN. [Concomitant]
     Active Substance: ASPIRIN
     Indication: CARDIAC DISORDER
  34. MICONAZOLE. [Concomitant]
     Active Substance: MICONAZOLE
  35. PRILOSEC [Suspect]
     Active Substance: OMEPRAZOLE MAGNESIUM
     Indication: GASTROOESOPHAGEAL REFLUX DISEASE
     Route: 048
     Dates: start: 1996, end: 2016
  36. PROTONIX [Suspect]
     Active Substance: PANTOPRAZOLE SODIUM
     Indication: GASTROOESOPHAGEAL REFLUX DISEASE
     Route: 065
     Dates: start: 1996, end: 2016
  37. GLIPIZIDE. [Concomitant]
     Active Substance: GLIPIZIDE
     Indication: DIABETES MELLITUS
  38. HYDROCHLOROTHIAZIDE. [Concomitant]
     Active Substance: HYDROCHLOROTHIAZIDE
  39. PRECOSE [Concomitant]
     Active Substance: ACARBOSE
  40. STATIN [Concomitant]
     Active Substance: UNSPECIFIED INGREDIENT

REACTIONS (3)
  - Diabetes mellitus [Unknown]
  - Chronic kidney disease [Not Recovered/Not Resolved]
  - Renal failure [Not Recovered/Not Resolved]

NARRATIVE: CASE EVENT DATE: 2010
